FAERS Safety Report 24437433 (Version 1)
Quarter: 2024Q4

REPORT INFORMATION
  Report Type: Spontaneous
  Country: CN (occurrence: CN)
  Receive Date: 20241015
  Receipt Date: 20241015
  Transmission Date: 20250115
  Serious: Yes (Other)
  Sender: TAKEDA
  Company Number: CN-TAKEDA-2024TUS102868

PATIENT
  Age: 53 Year
  Sex: Male
  Weight: 73.5 kg

DRUGS (1)
  1. ALBUMIN HUMAN [Suspect]
     Active Substance: ALBUMIN HUMAN
     Indication: Blood albumin decreased
     Dosage: 10 MILLIGRAM, QD
     Route: 041
     Dates: start: 20241008, end: 20241009

REACTIONS (1)
  - Rash [Recovering/Resolving]

NARRATIVE: CASE EVENT DATE: 20241009
